FAERS Safety Report 5258843-0 (Version None)
Quarter: 2007Q1

REPORT INFORMATION
  Report Type: 
  Country: None (occurrence: None)
  Receive Date: 20070308
  Receipt Date: 20070302
  Transmission Date: 20070707
  Serious: Yes (Death, Life-Threatening, Hospitalization, Other)
  Sender: FDA-Public Use
  Company Number: JP-JPN-A200700079

PATIENT
  Age: 39 Year
  Sex: Female

DRUGS (14)
  1. FLOLAN [Suspect]
     Indication: PULMONARY HYPERTENSION
     Route: 042
     Dates: start: 20000921
  2. TRACLEER [Suspect]
     Route: 048
     Dates: start: 20060924
  3. FUROSEMIDE [Concomitant]
     Route: 048
  4. SPIRONOLACTONE [Concomitant]
     Route: 048
  5. MERCAZOLE [Concomitant]
     Route: 048
  6. GOODMIN [Concomitant]
     Route: 048
  7. POTASSIUM GLUCONATE TAB [Concomitant]
     Route: 048
  8. FERROMIA [Concomitant]
     Route: 048
  9. CINAL [Concomitant]
     Route: 048
  10. UNKNOWN DRUG [Concomitant]
     Route: 048
     Dates: start: 20070112
  11. MEDICON [Concomitant]
     Route: 048
     Dates: start: 20060112
  12. BISOLVON [Concomitant]
     Route: 048
     Dates: start: 20060112
  13. POLARAMINE [Concomitant]
     Route: 048
     Dates: start: 20060112
  14. LEVOFLOXACIN [Concomitant]
     Route: 048
     Dates: start: 20060112

REACTIONS (6)
  - CARDIAC FAILURE [None]
  - CATHETER RELATED INFECTION [None]
  - NASOPHARYNGITIS [None]
  - PALPITATIONS [None]
  - PULMONARY HAEMORRHAGE [None]
  - SUPRAVENTRICULAR TACHYCARDIA [None]
